FAERS Safety Report 24138187 (Version 1)
Quarter: 2024Q3

REPORT INFORMATION
  Report Type: Spontaneous
  Country: US (occurrence: US)
  Receive Date: 20240725
  Receipt Date: 20240725
  Transmission Date: 20241017
  Serious: No
  Sender: SANOFI AVENTIS
  Company Number: US-SANOFI-02145649

PATIENT
  Age: 52 Year
  Sex: Female

DRUGS (3)
  1. LANTUS SOLOSTAR [Suspect]
     Active Substance: INSULIN GLARGINE
     Indication: Type 2 diabetes mellitus
     Dosage: 15 IU, QD
     Dates: start: 202405, end: 2024
  2. LANTUS SOLOSTAR [Suspect]
     Active Substance: INSULIN GLARGINE
     Dosage: 22 IU, QD
     Dates: start: 2024
  3. METFORMIN [Concomitant]
     Active Substance: METFORMIN HYDROCHLORIDE
     Dosage: UNK

REACTIONS (2)
  - Blood glucose abnormal [Unknown]
  - Therapeutic response decreased [Unknown]

NARRATIVE: CASE EVENT DATE: 20240101
